FAERS Safety Report 8392885-1 (Version None)
Quarter: 2012Q2

REPORT INFORMATION
  Report Type: 
  Country: None (occurrence: None)
  Receive Date: 20120529
  Receipt Date: 20120227
  Transmission Date: 20120825
  Serious: No
  Sender: FDA-Public Use
  Company Number: US-MYLANLABS-2012S1004445

PATIENT

DRUGS (1)
  1. ZOLPIDEM TARTRATE [Suspect]

REACTIONS (4)
  - IRRITABILITY [None]
  - SWELLING FACE [None]
  - HEADACHE [None]
  - INSOMNIA [None]
